FAERS Safety Report 10283625 (Version 2)
Quarter: 2014Q3

REPORT INFORMATION
  Report Type: Spontaneous
  Country: US (occurrence: None)
  Receive Date: 20140702
  Receipt Date: 20140715
  Transmission Date: 20150326
  Serious: Yes (Other)
  Sender: FDA-Public Use
  Company Number: 20140365

PATIENT
  Age: 2 Week
  Sex: Female

DRUGS (1)
  1. METHYLDOPATE HYDROCHLORIDE. [Suspect]
     Active Substance: METHYLDOPATE HYDROCHLORIDE
     Indication: PRODUCT USED FOR UNKNOWN INDICATION
     Route: 064

REACTIONS (17)
  - Cardiac failure acute [None]
  - Premature baby [None]
  - Transaminases increased [None]
  - Tricuspid valve incompetence [None]
  - Neonatal respiratory distress syndrome [None]
  - Drug withdrawal syndrome neonatal [None]
  - Atrial septal defect [None]
  - Hyperbilirubinaemia neonatal [None]
  - Caesarean section [None]
  - Small for dates baby [None]
  - Feeding disorder neonatal [None]
  - Hypoglycaemia neonatal [None]
  - Pulmonary hypertension [None]
  - Haemodynamic instability [None]
  - Blood urine present [None]
  - Hypertensive crisis [None]
  - Maternal drugs affecting foetus [None]
